FAERS Safety Report 8896176 (Version 1)
Quarter: 2012Q4

REPORT INFORMATION
  Report Type: 
  Country: US (occurrence: US)
  Receive Date: 20121108
  Receipt Date: 20121108
  Transmission Date: 20130627
  Serious: No
  Sender: FDA-Public Use
  Company Number: US-ASTRAZENECA-2012SE82199

PATIENT
  Age: 65 Year
  Sex: Male

DRUGS (2)
  1. MERREM [Suspect]
     Route: 042
  2. VANCOMYCIN [Interacting]
     Route: 065

REACTIONS (1)
  - Drug interaction [Unknown]
